FAERS Safety Report 8834766 (Version 2)
Quarter: 2012Q4

REPORT INFORMATION
  Report Type: 
  Country: US (occurrence: US)
  Receive Date: 20121010
  Receipt Date: 20121011
  Transmission Date: 20130627
  Serious: Yes (Death, Hospitalization)
  Sender: FDA-Public Use
  Company Number: US-UCBSA-068288

PATIENT
  Sex: Female

DRUGS (12)
  1. CIMZIA [Suspect]
     Indication: CROHN^S DISEASE
     Route: 058
     Dates: start: 20110913, end: 20120923
  2. POTASSIUM [Concomitant]
  3. CRANBERRY PILLS [Concomitant]
  4. CALCIUM WITH VITAMIN D [Concomitant]
  5. VITAMIN D [Concomitant]
  6. MULTIVITAMIN [Concomitant]
  7. NOVOLOG [Concomitant]
  8. GABAPENTIN [Concomitant]
  9. LISINOPRIL [Concomitant]
  10. INDAPAMID [Concomitant]
  11. FISH OIL [Concomitant]
  12. ROCEPHIN [Concomitant]

REACTIONS (13)
  - Renal failure acute [Fatal]
  - Metabolic acidosis [Fatal]
  - Sepsis [Fatal]
  - Diabetes mellitus [Unknown]
  - Crohn^s disease [Unknown]
  - Abscess [Unknown]
  - Bradyphrenia [Unknown]
  - Vision blurred [Unknown]
  - Dyspnoea [Unknown]
  - Decreased appetite [Unknown]
  - Encephalopathy [Unknown]
  - Urinary tract infection [Unknown]
  - Fistula [Unknown]
